FAERS Safety Report 17100477 (Version 1)
Quarter: 2019Q4

REPORT INFORMATION
  Report Type: Spontaneous
  Country: US (occurrence: US)
  Receive Date: 20191202
  Receipt Date: 20191202
  Transmission Date: 20200122
  Serious: Yes (Death, Other)
  Sender: FDA-Public Use
  Company Number: US-AMGEN-USASP2019198569

PATIENT
  Age: 64 Year
  Sex: Female

DRUGS (1)
  1. ROMIPLOSTIM [Suspect]
     Active Substance: ROMIPLOSTIM
     Indication: THROMBOCYTOPENIA
     Dosage: 1.6 MICROGRAM/KILOGRAM, QWK
     Route: 058

REACTIONS (3)
  - Sepsis [Unknown]
  - Off label use [Unknown]
  - Death [Fatal]
